FAERS Safety Report 18163935 (Version 2)
Quarter: 2020Q3

REPORT INFORMATION
  Report Type: Spontaneous
  Country: GB (occurrence: US)
  Receive Date: 20200818
  Receipt Date: 20200818
  Transmission Date: 20201103
  Serious: No
  Sender: FDA-Public Use
  Company Number: GB-OTSUKA-2019_019330

PATIENT
  Age: 20 Year
  Sex: Female

DRUGS (3)
  1. ARIPIPRAZOLE. [Suspect]
     Active Substance: ARIPIPRAZOLE
     Indication: SCHIZOPHRENIA
     Dosage: UNK
     Route: 065
  2. PALIPERIDONE. [Concomitant]
     Active Substance: PALIPERIDONE
     Indication: SCHIZOPHRENIA
     Dosage: UNK
     Route: 065
  3. RISPERIDONE. [Concomitant]
     Active Substance: RISPERIDONE
     Indication: SCHIZOPHRENIA
     Dosage: UNK
     Route: 065

REACTIONS (8)
  - Poverty of speech [Recovering/Resolving]
  - Akathisia [Unknown]
  - Drug ineffective [Unknown]
  - Anosognosia [Not Recovered/Not Resolved]
  - Social anxiety disorder [Recovering/Resolving]
  - Aversion [Unknown]
  - Flat affect [Unknown]
  - Paranoia [Recovering/Resolving]
